FAERS Safety Report 15794662 (Version 1)
Quarter: 2019Q1

REPORT INFORMATION
  Report Type: Spontaneous
  Country: US (occurrence: US)
  Receive Date: 20190107
  Receipt Date: 20190107
  Transmission Date: 20190417
  Serious: Yes (Other)
  Sender: FDA-Public Use
  Company Number: US-B.I. PHARMACEUTICALS,INC./RIDGEFIELD-2019-BI-000335

PATIENT
  Age: 79 Year
  Sex: Male

DRUGS (1)
  1. JARDIANCE [Suspect]
     Active Substance: EMPAGLIFLOZIN
     Indication: PRODUCT USED FOR UNKNOWN INDICATION
     Dosage: UNKNOWN;  FORM STRENGTH: UNKNOWN MG; FORMULATION: CAPLET  ACTION(S) TAKEN: NOT REPORTED
     Route: 048
     Dates: start: 2018

REACTIONS (3)
  - Penis disorder [Not Recovered/Not Resolved]
  - Fungal infection [Recovered/Resolved]
  - Nephrolithiasis [Not Recovered/Not Resolved]
